FAERS Safety Report 6672672-2 (Version None)
Quarter: 2010Q2

REPORT INFORMATION
  Report Type: 
  Country: None (occurrence: None)
  Receive Date: 20100408
  Receipt Date: 20100329
  Transmission Date: 20101027
  Serious: Yes (Hospitalization)
  Sender: FDA-Public Use
  Company Number: US-SANOFI-AVENTIS-2010SA019453

PATIENT
  Age: 68 Year
  Sex: Female

DRUGS (7)
  1. LANTUS [Suspect]
     Indication: DIABETES MELLITUS
     Dosage: DOSE:30 UNIT(S)
     Route: 058
  2. SOLOSTAR [Suspect]
     Indication: DIABETES MELLITUS
  3. GLIMEPIRIDE [Concomitant]
  4. ANTIHYPERTENSIVES [Concomitant]
  5. OXYGEN [Concomitant]
     Route: 045
  6. ALL OTHER THERAPEUTIC PRODUCTS [Concomitant]
     Dosage: MEDICATION NOT KNOWN ;NOT SURE IF LIQIUID , EMUL ETC.
  7. ALL OTHER THERAPEUTIC PRODUCTS [Concomitant]

REACTIONS (8)
  - ASTHMA [None]
  - BLOOD PRESSURE ABNORMAL [None]
  - CONDITION AGGRAVATED [None]
  - DYSPNOEA [None]
  - EMPHYSEMA [None]
  - LOSS OF CONSCIOUSNESS [None]
  - OEDEMA PERIPHERAL [None]
  - SMALL INTESTINAL OBSTRUCTION [None]
